FAERS Safety Report 17244469 (Version 6)
Quarter: 2021Q4

REPORT INFORMATION
  Report Type: Spontaneous
  Country: US (occurrence: US)
  Receive Date: 20200107
  Receipt Date: 20211105
  Transmission Date: 20220303
  Serious: Yes (Other)
  Sender: FDA-Public Use
  Company Number: US-GILEAD-2020-0445093

PATIENT
  Age: 69 Year
  Sex: Male
  Weight: 117.93 kg

DRUGS (44)
  1. ATRIPLA [Suspect]
     Active Substance: EFAVIRENZ\EMTRICITABINE\TENOFOVIR DISOPROXIL FUMARATE
     Indication: HIV infection
     Dosage: UNK
     Route: 048
     Dates: start: 200808, end: 20170714
  2. ATRIPLA [Suspect]
     Active Substance: EFAVIRENZ\EMTRICITABINE\TENOFOVIR DISOPROXIL FUMARATE
     Dosage: UNK
     Route: 048
     Dates: start: 20071210, end: 20160930
  3. COMBIVIR [Concomitant]
     Active Substance: LAMIVUDINE\ZIDOVUDINE
  4. CRIXIVAN [Concomitant]
     Active Substance: INDINAVIR SULFATE
  5. EPIVIR [Concomitant]
     Active Substance: LAMIVUDINE
  6. RETROVIR [Concomitant]
     Active Substance: ZIDOVUDINE
  7. SUSTIVA [Concomitant]
     Active Substance: EFAVIRENZ
  8. TRIUMEQ [Concomitant]
     Active Substance: ABACAVIR SULFATE\DOLUTEGRAVIR SODIUM\LAMIVUDINE
  9. VIDEX EC [Concomitant]
     Active Substance: DIDANOSINE
  10. VIRAMUNE XR [Concomitant]
     Active Substance: NEVIRAPINE
  11. CIPROFLOXACIN [Concomitant]
     Active Substance: CIPROFLOXACIN
  12. LIPITOR [Concomitant]
     Active Substance: ATORVASTATIN CALCIUM
  13. LOPRESSOR [Concomitant]
     Active Substance: METOPROLOL TARTRATE
  14. DIOVAN HCT [Concomitant]
     Active Substance: HYDROCHLOROTHIAZIDE\VALSARTAN
  15. AVALIDE [Concomitant]
     Active Substance: HYDROCHLOROTHIAZIDE\IRBESARTAN
  16. AVAPRO [Concomitant]
     Active Substance: IRBESARTAN
  17. BASAGLAR KWIKPEN [Concomitant]
     Active Substance: INSULIN GLARGINE
  18. METFORMIN HYDROCHLORIDE [Concomitant]
     Active Substance: METFORMIN HYDROCHLORIDE
  19. GLUCOPHAGE [Concomitant]
     Active Substance: METFORMIN HYDROCHLORIDE
  20. GLUCOTROL XL [Concomitant]
     Active Substance: GLIPIZIDE
  21. TORSEMIDE [Concomitant]
     Active Substance: TORSEMIDE
  22. SODIUM BICARBONATE [Concomitant]
     Active Substance: SODIUM BICARBONATE
  23. ACTOS [Concomitant]
     Active Substance: PIOGLITAZONE HYDROCHLORIDE
  24. TOPROL XL [Concomitant]
     Active Substance: METOPROLOL SUCCINATE
  25. LANTUS [Concomitant]
     Active Substance: INSULIN GLARGINE
  26. ACETAMINOPHEN [Concomitant]
     Active Substance: ACETAMINOPHEN
  27. ASPIRIN [Concomitant]
     Active Substance: ASPIRIN
  28. DEMADEX [Concomitant]
     Active Substance: TORSEMIDE
  29. PREDNISOLONE [Concomitant]
     Active Substance: PREDNISOLONE
  30. JANUVIA [Concomitant]
     Active Substance: SITAGLIPTIN PHOSPHATE
  31. TYLENOL [Concomitant]
     Active Substance: ACETAMINOPHEN
  32. NORVASC [Concomitant]
     Active Substance: AMLODIPINE BESYLATE
  33. MELOXICAM [Concomitant]
     Active Substance: MELOXICAM
  34. TERAZOSIN [Concomitant]
     Active Substance: TERAZOSIN HYDROCHLORIDE
  35. GLIPIZIDE [Concomitant]
     Active Substance: GLIPIZIDE
  36. IRBESARTAN [Concomitant]
     Active Substance: IRBESARTAN
  37. ERGOCALCIFEROL [Concomitant]
     Active Substance: ERGOCALCIFEROL
  38. VITAMIN D3 [Concomitant]
     Active Substance: CHOLECALCIFEROL
  39. HYDROCHLOROTHIAZIDE [Concomitant]
     Active Substance: HYDROCHLOROTHIAZIDE
  40. CETIRIZINE HCL [Concomitant]
     Active Substance: CETIRIZINE HYDROCHLORIDE
  41. SULFAMETHOXAZOLE\TRIMETHOPRIM [Concomitant]
     Active Substance: SULFAMETHOXAZOLE\TRIMETHOPRIM
  42. INFLUENZA VIRUS VACCINE [Concomitant]
     Active Substance: INFLUENZA VIRUS VACCINE
  43. GABAPENTIN [Concomitant]
     Active Substance: GABAPENTIN
  44. PNEUMOCOCCAL VACCINE POLYVALENT NOS [Concomitant]
     Active Substance: PNEUMOCOCCAL VACCINE POLYVALENT

REACTIONS (8)
  - Chronic kidney disease [Not Recovered/Not Resolved]
  - Chronic kidney disease [Recovered/Resolved]
  - Emotional distress [Not Recovered/Not Resolved]
  - Anhedonia [Not Recovered/Not Resolved]
  - Mobility decreased [Unknown]
  - Proteinuria [Not Recovered/Not Resolved]
  - Anxiety [Not Recovered/Not Resolved]
  - Pain [Not Recovered/Not Resolved]

NARRATIVE: CASE EVENT DATE: 20150612
